FAERS Safety Report 8407533-1 (Version None)
Quarter: 2012Q2

REPORT INFORMATION
  Report Type: 
  Country: None (occurrence: None)
  Receive Date: 20120604
  Receipt Date: 20120524
  Transmission Date: 20120825
  Serious: Yes (Other)
  Sender: FDA-Public Use
  Company Number: US-ASTRAZENECA-2011SE66869

PATIENT
  Age: 64 Year
  Sex: Female

DRUGS (3)
  1. NEXIUM [Suspect]
     Route: 048
  2. PRILOSEC [Suspect]
     Route: 048
     Dates: start: 20100901
  3. PRILOSEC OTC [Suspect]
     Route: 048

REACTIONS (22)
  - LIGAMENT SPRAIN [None]
  - DYSPHAGIA [None]
  - REGURGITATION [None]
  - CATARACT [None]
  - GOITRE [None]
  - PAIN IN EXTREMITY [None]
  - NAUSEA [None]
  - THROAT IRRITATION [None]
  - HIATUS HERNIA [None]
  - INTENTIONAL DRUG MISUSE [None]
  - DRUG INEFFECTIVE [None]
  - ARTHROPOD BITE [None]
  - ABDOMINAL DISCOMFORT [None]
  - LIMB INJURY [None]
  - ARTHRALGIA [None]
  - GASTROOESOPHAGEAL REFLUX DISEASE [None]
  - DYSPNOEA [None]
  - JOINT INJURY [None]
  - VOMITING [None]
  - EAR INFECTION [None]
  - FOOT FRACTURE [None]
  - HEADACHE [None]
